FAERS Safety Report 9046515 (Version 1)
Quarter: 2013Q1

REPORT INFORMATION
  Report Type: Spontaneous
  Country: ES (occurrence: ES)
  Receive Date: 20130204
  Receipt Date: 20130204
  Transmission Date: 20140127
  Serious: Yes (Hospitalization, Other)
  Sender: FDA-Public Use
  Company Number: ES-ELI_LILLY_AND_COMPANY-ES201301008932

PATIENT
  Age: 55 None
  Sex: Male

DRUGS (1)
  1. FORSTEO [Suspect]
     Indication: FEMUR FRACTURE
     Dosage: 20 UG, QD
     Route: 058
     Dates: start: 20120620

REACTIONS (6)
  - Device breakage [Unknown]
  - Fracture nonunion [Unknown]
  - Pain [Not Recovered/Not Resolved]
  - Feeling abnormal [Unknown]
  - Off label use [Unknown]
  - Inappropriate schedule of drug administration [Unknown]
